FAERS Safety Report 8277973-2 (Version None)
Quarter: 2012Q2

REPORT INFORMATION
  Report Type: 
  Country: None (occurrence: None)
  Receive Date: 20120412
  Receipt Date: 20120403
  Transmission Date: 20120825
  Serious: Yes (Other)
  Sender: FDA-Public Use
  Company Number: US-ELI_LILLY_AND_COMPANY-US201204001210

PATIENT
  Age: 55 Year

DRUGS (4)
  1. PEMETREXED [Concomitant]
     Dosage: UNK, UNKNOWN
  2. ALIMTA [Suspect]
     Indication: NON-SMALL CELL LUNG CANCER STAGE IV
     Dosage: UNK, UNKNOWN
     Dates: end: 20110701
  3. CARBOPLATIN [Concomitant]
     Dosage: UNK, UNKNOWN
  4. AVASTIN [Concomitant]
     Dosage: UNK, UNKNOWN

REACTIONS (3)
  - PLEURAL EFFUSION [None]
  - DYSPNOEA [None]
  - LYMPHADENECTOMY [None]
